FAERS Safety Report 9448836 (Version 1)
Quarter: 2013Q3

REPORT INFORMATION
  Report Type: Spontaneous
  Country: AT (occurrence: AT)
  Receive Date: 20130808
  Receipt Date: 20130808
  Transmission Date: 20140515
  Serious: Yes (Hospitalization, Other)
  Sender: FDA-Public Use
  Company Number: AT-VERTEX PHARMACEUTICALS INC-000000000000000719

PATIENT
  Age: 59 Year
  Sex: Male

DRUGS (4)
  1. INCIVO [Suspect]
     Indication: CHRONIC HEPATITIS C
     Dosage: DOSAGE FORM: TABLET
     Route: 048
     Dates: start: 20120220, end: 20120328
  2. COPEGUS [Concomitant]
     Indication: CHRONIC HEPATITIS C
     Dates: start: 20120220, end: 20120423
  3. PEGASYS [Concomitant]
     Indication: CHRONIC HEPATITIS C
     Dates: start: 20120220, end: 20120423
  4. UROSIN [Concomitant]
     Indication: HYPERURICAEMIA
     Dates: start: 20120328

REACTIONS (3)
  - Liver disorder [Recovered/Resolved]
  - Oesophageal varices haemorrhage [Recovered/Resolved]
  - Bronchopneumonia [Recovered/Resolved]
